FAERS Safety Report 8373784-8 (Version None)
Quarter: 2012Q2

REPORT INFORMATION
  Report Type: 
  Country: None (occurrence: None)
  Receive Date: 20120521
  Receipt Date: 20120518
  Transmission Date: 20120825
  Serious: Yes (Death, Hospitalization, Other)
  Sender: FDA-Public Use
  Company Number: PHHY2012ES021506

PATIENT
  Age: 72 Year
  Sex: Male

DRUGS (1)
  1. AFINITOR [Suspect]
     Indication: BRONCHIAL CARCINOMA
     Dosage: 10 MG, QD
     Route: 048
     Dates: start: 20110822, end: 20111014

REACTIONS (9)
  - HYPOCALCAEMIA [None]
  - RENAL FAILURE [None]
  - HYPERGLYCAEMIA [None]
  - NEUROLOGICAL DECOMPENSATION [None]
  - MULTI-ORGAN FAILURE [None]
  - PANCYTOPENIA [None]
  - ASTHENIA [None]
  - DYSPNOEA [None]
  - ENCEPHALOPATHY [None]
